FAERS Safety Report 24409447 (Version 3)
Quarter: 2024Q4

REPORT INFORMATION
  Report Type: Report from Study
  Country: CA (occurrence: CA)
  Receive Date: 20241008
  Receipt Date: 20241031
  Transmission Date: 20250115
  Serious: Yes (Hospitalization)
  Sender: ROCHE
  Company Number: CA-ROCHE-10000096349

PATIENT
  Age: 77 Year
  Sex: Female

DRUGS (1)
  1. VABYSMO [Suspect]
     Active Substance: FARICIMAB-SVOA
     Indication: Retinal vein occlusion
     Dosage: OS
     Route: 050
     Dates: start: 20240920

REACTIONS (6)
  - Accident [Unknown]
  - Skull fracture [Unknown]
  - Migraine [Unknown]
  - Traumatic lung injury [Unknown]
  - Visual impairment [Unknown]
  - Therapeutic response shortened [Unknown]
